FAERS Safety Report 13241266 (Version 2)
Quarter: 2017Q1

REPORT INFORMATION
  Report Type: Spontaneous
  Country: CO (occurrence: CO)
  Receive Date: 20170216
  Receipt Date: 20170303
  Transmission Date: 20170428
  Serious: Yes (Hospitalization, Other)
  Sender: FDA-Public Use
  Company Number: CO-FRESENIUS KABI-FK201701284

PATIENT
  Age: 6 Year
  Sex: Female

DRUGS (3)
  1. DEXAMETHASONE. [Concomitant]
     Active Substance: DEXAMETHASONE
     Indication: ACUTE LYMPHOCYTIC LEUKAEMIA
     Route: 037
     Dates: start: 20170124, end: 20170124
  2. CYTARABINE. [Concomitant]
     Active Substance: CYTARABINE
     Indication: ACUTE LYMPHOCYTIC LEUKAEMIA
     Route: 037
     Dates: start: 20170124, end: 20170124
  3. METHOTREXATE. [Suspect]
     Active Substance: METHOTREXATE
     Indication: ACUTE LYMPHOCYTIC LEUKAEMIA
     Route: 037
     Dates: start: 20170124, end: 20170124

REACTIONS (1)
  - Radiculopathy [Unknown]

NARRATIVE: CASE EVENT DATE: 20170124
